FAERS Safety Report 9132585 (Version 1)
Quarter: 2013Q1

REPORT INFORMATION
  Report Type: Spontaneous
  Country: US (occurrence: US)
  Receive Date: 20130301
  Receipt Date: 20130301
  Transmission Date: 20140127
  Serious: Yes (Other)
  Sender: FDA-Public Use
  Company Number: US-TARO-2013P1002603

PATIENT
  Age: 32 Year
  Sex: Female
  Weight: 62.6 kg

DRUGS (5)
  1. PHENYTOIN SODIUM EXTENDED CAPSULES USP 100MG [Suspect]
     Indication: CONVULSION
     Route: 048
     Dates: start: 201211
  2. KEPPRA [Suspect]
     Indication: CONVULSION
     Dates: start: 201212
  3. KEPPRA [Suspect]
     Indication: CONVULSION
     Dates: start: 2013
  4. FLU SHOT [Suspect]
     Dates: start: 20130220, end: 20130220
  5. ESTRADIOL [Concomitant]

REACTIONS (14)
  - Petit mal epilepsy [Not Recovered/Not Resolved]
  - Pallor [Recovered/Resolved]
  - Flushing [Recovered/Resolved]
  - Vertigo [Recovered/Resolved]
  - Eye pruritus [Recovered/Resolved]
  - Ocular hyperaemia [Recovered/Resolved]
  - Heart rate increased [Recovered/Resolved]
  - Vomiting [Recovered/Resolved]
  - Tremor [Recovered/Resolved]
  - Dyspnoea [Recovered/Resolved]
  - Chest pain [Recovered/Resolved]
  - Blood pressure [Recovered/Resolved]
  - Anticonvulsant drug level decreased [Unknown]
  - Product quality issue [Unknown]
